FAERS Safety Report 9913416 (Version 1)
Quarter: 2014Q1

REPORT INFORMATION
  Report Type: Spontaneous
  Country: US (occurrence: None)
  Receive Date: 20140218
  Receipt Date: 20140218
  Transmission Date: 20141002
  Serious: Yes (Other)
  Sender: FDA-Public Use
  Company Number: None

PATIENT
  Age: 22 Year
  Sex: Female
  Weight: 140.62 kg

DRUGS (2)
  1. DULOXETINE (CAPSULES) [Suspect]
     Indication: DEPRESSION
     Route: 048
  2. DULOXETINE (CAPSULES) [Suspect]
     Indication: VULVOVAGINAL PAIN
     Route: 048

REACTIONS (3)
  - Rash [None]
  - Product substitution issue [None]
  - Therapeutic response unexpected with drug substitution [None]
